FAERS Safety Report 8553402-6 (Version None)
Quarter: 2012Q2

REPORT INFORMATION
  Report Type: 
  Country: None (occurrence: None)
  Receive Date: 20120417
  Receipt Date: 20110619
  Transmission Date: 20120825
  Serious: Yes (Other)
  Sender: FDA-Public Use
  Company Number: 11-368

PATIENT
  Age: 26 Year
  Sex: Female

DRUGS (3)
  1. CONTRACEPTIVES NOS [Concomitant]
  2. ORTHO TRI-CYCLEN LO [Concomitant]
  3. ALEVE [Suspect]
     Indication: BACK PAIN
     Dosage: 2DF / ORAL
     Route: 048

REACTIONS (3)
  - DYSPEPSIA [None]
  - ABDOMINAL PAIN UPPER [None]
  - HAEMATEMESIS [None]
